FAERS Safety Report 9582897 (Version 1)
Quarter: 2013Q4

REPORT INFORMATION
  Report Type: Spontaneous
  Country: US (occurrence: US)
  Receive Date: 20131002
  Receipt Date: 20131002
  Transmission Date: 20140711
  Serious: Yes (Other)
  Sender: FDA-Public Use
  Company Number: US-AMGEN-USASP2013043220

PATIENT
  Age: 49 Year
  Sex: Female

DRUGS (2)
  1. ENBREL [Suspect]
     Indication: RHEUMATOID ARTHRITIS
     Dosage: UNK UNK, QWK
     Dates: start: 20130201
  2. METHOTREXATE [Concomitant]
     Dosage: 40 MG, QWK

REACTIONS (3)
  - Pharyngitis streptococcal [Recovered/Resolved]
  - Cystitis [Recovered/Resolved]
  - Sinusitis [Not Recovered/Not Resolved]
